FAERS Safety Report 10676093 (Version 1)
Quarter: 2014Q4

REPORT INFORMATION
  Report Type: Report from Study
  Country: US (occurrence: US)
  Receive Date: 20141226
  Receipt Date: 20141226
  Transmission Date: 20150529
  Serious: Yes (Death)
  Sender: FDA-Public Use
  Company Number: US-ROCHE-1512577

PATIENT
  Age: 62 Year
  Sex: Male
  Weight: 53.2 kg

DRUGS (3)
  1. CARBOPLATIN. [Suspect]
     Active Substance: CARBOPLATIN
     Indication: SQUAMOUS CELL CARCINOMA OF HEAD AND NECK
     Dosage: DOSE: AUC 6, LAST ADMINISTERED DOSE ON 10/OCT/2014 (TOTAL DOSE ADMINISTERED THIS COURSE - 768MG)
     Route: 042
     Dates: start: 20140725
  2. BEVACIZUMAB [Suspect]
     Active Substance: BEVACIZUMAB
     Indication: SQUAMOUS CELL CARCINOMA OF HEAD AND NECK
     Dosage: LAST ADMINISTERED DOSE ON 10/OCT/2014 (TOTAL DOSE ADMINISTERED THIS COURSE - 867MG)
     Route: 042
     Dates: start: 20140725
  3. DOCETAXEL. [Suspect]
     Active Substance: DOCETAXEL
     Indication: SQUAMOUS CELL CARCINOMA OF HEAD AND NECK
     Dosage: LAST ADMINISTERED DOSE ON 10/OCT/2014 (TOTAL DOSE ADMINISTERED THIS COURSE- 92 MG)
     Route: 042
     Dates: start: 20140725

REACTIONS (1)
  - Death [Fatal]

NARRATIVE: CASE EVENT DATE: 20141110
